FAERS Safety Report 11361665 (Version 1)
Quarter: 2015Q3

REPORT INFORMATION
  Report Type: Spontaneous
  Country: US (occurrence: US)
  Receive Date: 20150810
  Receipt Date: 20150810
  Transmission Date: 20151125
  Serious: No
  Sender: FDA-Public Use
  Company Number: US-BAYER-2015-389780

PATIENT
  Sex: Female

DRUGS (1)
  1. CLIMARA [Suspect]
     Active Substance: ESTRADIOL
     Dosage: 0.025 MG, QD
     Route: 062

REACTIONS (7)
  - Swelling [None]
  - Breast tenderness [None]
  - Product packaging issue [None]
  - Application site irritation [None]
  - Hot flush [None]
  - Muscle spasms [None]
  - Application site erythema [None]
